FAERS Safety Report 18657656 (Version 2)
Quarter: 2021Q1

REPORT INFORMATION
  Report Type: Report from Study
  Country: US (occurrence: US)
  Receive Date: 20201224
  Receipt Date: 20210108
  Transmission Date: 20210419
  Serious: No
  Sender: FDA-Public Use
  Company Number: US-BIOGEN-2020BI00871770

PATIENT
  Age: 42 Year
  Sex: Male

DRUGS (2)
  1. TYSABRI [Suspect]
     Active Substance: NATALIZUMAB
     Route: 042
     Dates: start: 20140701
  2. TYSABRI [Suspect]
     Active Substance: NATALIZUMAB
     Indication: MULTIPLE SCLEROSIS
     Route: 042
     Dates: start: 20140430

REACTIONS (20)
  - Disorientation [Unknown]
  - Cognitive disorder [Not Recovered/Not Resolved]
  - Balance disorder [Unknown]
  - Gait disturbance [Not Recovered/Not Resolved]
  - Amnesia [Not Recovered/Not Resolved]
  - Nystagmus [Not Recovered/Not Resolved]
  - Vomiting [Recovered/Resolved]
  - Immune system disorder [Not Recovered/Not Resolved]
  - Confusional state [Unknown]
  - Migraine [Recovered/Resolved]
  - Motor dysfunction [Not Recovered/Not Resolved]
  - Nausea [Recovered/Resolved]
  - Musculoskeletal stiffness [Unknown]
  - Fatigue [Not Recovered/Not Resolved]
  - Central nervous system lesion [Unknown]
  - Hypersomnia [Unknown]
  - Haemorrhoids [Unknown]
  - Gastric disorder [Recovered/Resolved]
  - Headache [Recovered/Resolved]
  - Influenza [Recovered/Resolved]

NARRATIVE: CASE EVENT DATE: 20160206
